FAERS Safety Report 5596563-3 (Version None)
Quarter: 2008Q1

REPORT INFORMATION
  Report Type: 
  Country: None (occurrence: None)
  Receive Date: 20080118
  Receipt Date: 20080107
  Transmission Date: 20080703
  Serious: Yes (Hospitalization)
  Sender: FDA-Public Use
  Company Number: FR-PFIZER INC-2008002724

PATIENT
  Age: 86 Year
  Sex: Female

DRUGS (12)
  1. LYRICA [Suspect]
     Indication: FACIAL NEURALGIA
     Route: 048
     Dates: start: 20070904, end: 20070908
  2. DILTIAZEM HYDROCHLORIDE [Interacting]
     Route: 048
  3. TEGRETOL [Interacting]
     Indication: FACIAL NEURALGIA
     Route: 048
  4. GABAPENTIN [Concomitant]
     Indication: FACIAL NEURALGIA
  5. CLONAZEPAM [Concomitant]
     Indication: FACIAL NEURALGIA
     Route: 048
  6. SPIRONOLACTONE [Concomitant]
  7. PLAVIX [Concomitant]
     Route: 048
  8. BETASERC [Concomitant]
     Route: 048
  9. ADANCOR [Concomitant]
     Route: 048
  10. MOVICOL [Concomitant]
     Route: 048
  11. LANZOR [Concomitant]
     Route: 048
  12. ALL OTHER THERAPEUTIC PRODUCTS [Concomitant]
     Route: 048

REACTIONS (4)
  - DRUG INTERACTION [None]
  - FALL [None]
  - SOMNOLENCE [None]
  - VOMITING [None]
